FAERS Safety Report 10747758 (Version 2)
Quarter: 2015Q1

REPORT INFORMATION
  Report Type: Spontaneous
  Country: GB (occurrence: None)
  Receive Date: 20150127
  Receipt Date: 20150204
  Transmission Date: 20150721
  Serious: Yes (Death, Other)
  Sender: FDA-Public Use
  Company Number: FK201500348

PATIENT
  Age: 51 Year
  Sex: Female

DRUGS (3)
  1. ESCITALOPRAM [Suspect]
     Active Substance: ESCITALOPRAM OXALATE
     Indication: DEPRESSED MOOD
     Route: 048
     Dates: start: 20140620
  2. ADCAL-D3 (LEKOVIT CA) [Concomitant]
     Active Substance: CALCIUM CARBONATE\CHOLECALCIFEROL
  3. LETROZOLE. [Suspect]
     Active Substance: LETROZOLE
     Indication: BREAST CANCER STAGE II
     Route: 048
     Dates: start: 20140617

REACTIONS (3)
  - Completed suicide [None]
  - Drug interaction [None]
  - Depression [None]

NARRATIVE: CASE EVENT DATE: 20140721
